FAERS Safety Report 5648137-3 (Version None)
Quarter: 2008Q1

REPORT INFORMATION
  Report Type: 
  Country: None (occurrence: None)
  Receive Date: 20080229
  Receipt Date: 20080220
  Transmission Date: 20080703
  Serious: Yes (Other)
  Sender: FDA-Public Use
  Company Number: 08012375

PATIENT
  Age: 44 Year
  Sex: Female

DRUGS (2)
  1. CLOTRIMAZOLE [Suspect]
     Dosage: 1APP,BID, TOPICAL
     Route: 061
  2. CLOBETASOL PROPIONATE [Suspect]
     Dosage: 1APP, BID, TOPICAL
     Route: 061

REACTIONS (2)
  - DRUG DISPENSING ERROR [None]
  - DRUG INEFFECTIVE [None]
